FAERS Safety Report 6481128-1 (Version None)
Quarter: 2009Q4

REPORT INFORMATION
  Report Type: 
  Country: None (occurrence: None)
  Receive Date: 20091208
  Receipt Date: 20090311
  Transmission Date: 20100525
  Serious: No
  Sender: FDA-Public Use
  Company Number: US-AMGEN-KDL337957

PATIENT
  Sex: Female
  Weight: 63.6 kg

DRUGS (2)
  1. ENBREL [Suspect]
     Indication: RHEUMATOID ARTHRITIS
     Dates: start: 20090114
  2. UNSPECIFIED NUTRITIONAL SUPPLEMENT [Concomitant]

REACTIONS (7)
  - ABDOMINAL DISCOMFORT [None]
  - ANXIETY [None]
  - DIARRHOEA [None]
  - FEELING JITTERY [None]
  - HYPOAESTHESIA [None]
  - INSOMNIA [None]
  - MENTAL DISORDER [None]
